FAERS Safety Report 9796348 (Version 2)
Quarter: 2014Q1

REPORT INFORMATION
  Report Type: Spontaneous
  Country: US (occurrence: US)
  Receive Date: 20140103
  Receipt Date: 20140103
  Transmission Date: 20141002
  Serious: Yes (Hospitalization, Other)
  Sender: FDA-Public Use
  Company Number: US-BAXTER-2013BAX052656

PATIENT
  Sex: Male

DRUGS (3)
  1. DIANEAL LOW CALCIUM (ULTRABAG) [Suspect]
     Indication: PERITONEAL DIALYSIS
     Route: 033
     Dates: start: 201209
  2. LISINOPRIL [Suspect]
     Indication: HYPERTENSION
  3. LISINOPRIL [Suspect]
     Route: 048

REACTIONS (2)
  - Blood pressure decreased [Recovered/Resolved]
  - Overdose [Unknown]
